FAERS Safety Report 8631986 (Version 2)
Quarter: 2013Q1

REPORT INFORMATION
  Report Type: Spontaneous
  Country: US (occurrence: None)
  Receive Date: 20120611
  Receipt Date: 20120926
  Transmission Date: 20140127
  Serious: Yes (Hospitalization)
  Sender: FDA-Public Use
  Company Number: UCM201205-000051

PATIENT
  Age: 59 Year
  Sex: Male

DRUGS (2)
  1. HYDROCHLOROTHIAZIDE [Suspect]
  2. SILDENAFIL [Suspect]
     Dosage: 50 MG

REACTIONS (6)
  - SPINAL CORD INFARCTION [None]
  - HYPOTENSION [None]
  - DIZZINESS [None]
  - VISION BLURRED [None]
  - PARAPLEGIA [None]
  - DRUG INTERACTION [None]
